FAERS Safety Report 7409267-9 (Version None)
Quarter: 2011Q2

REPORT INFORMATION
  Report Type: 
  Country: None (occurrence: None)
  Receive Date: 20110412
  Receipt Date: 20110405
  Transmission Date: 20111010
  Serious: Yes (Other)
  Sender: FDA-Public Use
  Company Number: A0921482A

PATIENT
  Sex: Female

DRUGS (2)
  1. LOVAZA [Suspect]
     Route: 048
     Dates: start: 20090401, end: 20100701
  2. NO CONCURRENT MEDICATION [Concomitant]

REACTIONS (1)
  - ANGIOEDEMA [None]
